FAERS Safety Report 20348911 (Version 2)
Quarter: 2023Q4

REPORT INFORMATION
  Report Type: Spontaneous
  Country: MY (occurrence: MY)
  Receive Date: 20220119
  Receipt Date: 20231006
  Transmission Date: 20240109
  Serious: Yes (Death)
  Sender: FDA-Public Use
  Company Number: MY-002147023-NVSC2022MY007410

PATIENT
  Sex: Male

DRUGS (1)
  1. XOLAIR [Suspect]
     Active Substance: OMALIZUMAB
     Indication: Product used for unknown indication
     Route: 065

REACTIONS (2)
  - COVID-19 [Fatal]
  - Photosensitivity reaction [Unknown]
